FAERS Safety Report 14582519 (Version 1)
Quarter: 2018Q1

REPORT INFORMATION
  Report Type: Spontaneous
  Country: US (occurrence: US)
  Receive Date: 20180228
  Receipt Date: 20180228
  Transmission Date: 20180509
  Serious: Yes (Other)
  Sender: FDA-Public Use
  Company Number: US-JNJFOC-20180231799

PATIENT

DRUGS (4)
  1. TRIMETHOPRIM SULFAMETHOXAZOLE [Concomitant]
     Active Substance: SULFAMETHOXAZOLE\TRIMETHOPRIM
     Indication: PROPHYLAXIS
     Route: 065
  2. DOXORUBICIN HYDROCHLORIDE. [Suspect]
     Active Substance: DOXORUBICIN HYDROCHLORIDE
     Indication: BREAST CANCER METASTATIC
     Dosage: ESCALATING DOSE: 30, 35 AND 40 MG/M2 (MAXIMUM TOLERATED DOSE: 30 MG/M2)
     Route: 065
  3. TRASTUZUMAB. [Concomitant]
     Active Substance: TRASTUZUMAB
     Route: 065
  4. CYCLOPHOSPHAMIDE. [Suspect]
     Active Substance: CYCLOPHOSPHAMIDE
     Indication: BREAST CANCER METASTATIC
     Route: 048

REACTIONS (10)
  - Embolism [Unknown]
  - Anaemia [Unknown]
  - Fatigue [Unknown]
  - Leukopenia [Unknown]
  - Cytopenia [Unknown]
  - Nausea [Unknown]
  - Cystitis haemorrhagic [Unknown]
  - Neutropenia [Unknown]
  - Vomiting [Unknown]
  - Mucosal inflammation [Unknown]
